FAERS Safety Report 5323869-5 (Version None)
Quarter: 2007Q2

REPORT INFORMATION
  Report Type: 
  Country: None (occurrence: None)
  Receive Date: 20070510
  Receipt Date: 20070510
  Transmission Date: 20071010
  Serious: Yes (Hospitalization, Other)
  Sender: FDA-Public Use
  Company Number: None

PATIENT
  Age: 43 Year
  Sex: Male
  Weight: 83.9154 kg

DRUGS (2)
  1. COMMIT [Suspect]
     Indication: NICOTINE DEPENDENCE
     Dosage: 1 LOZENGE 15 TIMES DAILY PO
     Route: 048
     Dates: start: 19990101, end: 20061121
  2. NICOTINE REPLACEMENT GUM [Concomitant]

REACTIONS (3)
  - DIVERTICULITIS [None]
  - DRUG DEPENDENCE [None]
  - STRESS [None]
